FAERS Safety Report 4815788-5 (Version None)
Quarter: 2005Q4

REPORT INFORMATION
  Report Type: 
  Country: None (occurrence: None)
  Receive Date: 20051031
  Receipt Date: 20051019
  Transmission Date: 20060501
  Serious: Yes (Other)
  Sender: FDA-Public Use
  Company Number: GB-GLAXOSMITHKLINE-B0398120A

PATIENT
  Age: 50 Year
  Sex: Female

DRUGS (1)
  1. SEROXAT [Suspect]
     Route: 065

REACTIONS (7)
  - AGGRESSION [None]
  - ANGER [None]
  - BRUXISM [None]
  - FEAR [None]
  - NIGHTMARE [None]
  - SUICIDAL IDEATION [None]
  - TOOTH LOSS [None]
